FAERS Safety Report 8834341 (Version 1)
Quarter: 2012Q4

REPORT INFORMATION
  Report Type: Spontaneous
  Country: US (occurrence: None)
  Receive Date: 20121010
  Receipt Date: 20121010
  Transmission Date: 20130627
  Serious: Yes (Other)
  Sender: FDA-Public Use
  Company Number: None

PATIENT
  Age: 28 Year
  Sex: Female
  Weight: 56.7 kg

DRUGS (4)
  1. MONTELUKAST [Suspect]
     Indication: ASTHMA
     Route: 048
     Dates: start: 20120915, end: 20121008
  2. MONTELUKAST [Suspect]
     Indication: MULTIPLE ALLERGIES
     Route: 048
     Dates: start: 20120915, end: 20121008
  3. CETIRIZINE [Concomitant]
  4. ALBUTEROL INH [Concomitant]

REACTIONS (3)
  - Asthma [None]
  - Hypersensitivity [None]
  - Product substitution issue [None]
